FAERS Safety Report 16367321 (Version 2)
Quarter: 2019Q2

REPORT INFORMATION
  Report Type: Spontaneous
  Country: US (occurrence: US)
  Receive Date: 20190529
  Receipt Date: 20190530
  Transmission Date: 20190711
  Serious: Yes (Other)
  Sender: FDA-Public Use
  Company Number: US-PFIZER INC-2019218294

PATIENT
  Age: 68 Year
  Sex: Male
  Weight: 90.72 kg

DRUGS (1)
  1. CAVERJECT IMPULSE [Suspect]
     Active Substance: ALPROSTADIL
     Indication: ERECTILE DYSFUNCTION
     Dosage: UNK [BETWEEN 5 AND 10 ML]
     Dates: start: 2018

REACTIONS (6)
  - Penile pain [Unknown]
  - Penile ulceration [Unknown]
  - Pain [Unknown]
  - Pemphigus [Not Recovered/Not Resolved]
  - Sexually transmitted disease [Unknown]
  - Blister [Unknown]

NARRATIVE: CASE EVENT DATE: 201901
